FAERS Safety Report 7949057-1 (Version None)
Quarter: 2011Q4

REPORT INFORMATION
  Report Type: 
  Country: None (occurrence: None)
  Receive Date: 20111130
  Receipt Date: 20111005
  Transmission Date: 20120403
  Serious: No
  Sender: FDA-Public Use
  Company Number: US-BRISTOL-MYERS SQUIBB COMPANY-16135758

PATIENT
  Age: 73 Year
  Sex: Female

DRUGS (4)
  1. VITAMIN D [Concomitant]
  2. MAGNESIUM SULFATE [Concomitant]
  3. KOMBIGLYZE XR [Suspect]
     Dates: start: 20111004
  4. VITAMIN B6 [Concomitant]

REACTIONS (1)
  - FEELING COLD [None]
